FAERS Safety Report 14649599 (Version 1)
Quarter: 2018Q1

REPORT INFORMATION
  Report Type: Spontaneous
  Country: US (occurrence: US)
  Receive Date: 20180316
  Receipt Date: 20180316
  Transmission Date: 20180509
  Serious: Yes (Hospitalization)
  Sender: FDA-Public Use
  Company Number: US-RICON PHARMA, LLC-RIC201803-000205

PATIENT
  Age: 63 Year
  Sex: Male

DRUGS (1)
  1. DICLOFENAC [Suspect]
     Active Substance: DICLOFENAC

REACTIONS (1)
  - Large intestinal stenosis [Recovered/Resolved]
